FAERS Safety Report 14601758 (Version 3)
Quarter: 2018Q1

REPORT INFORMATION
  Report Type: Spontaneous
  Country: JP (occurrence: JP)
  Receive Date: 20180306
  Receipt Date: 20180315
  Transmission Date: 20180509
  Serious: Yes (Other)
  Sender: FDA-Public Use
  Company Number: JP-ROCHE-2082906

PATIENT
  Age: 66 Year
  Sex: Female

DRUGS (5)
  1. TACROLIMUS HYDRATE [Concomitant]
     Active Substance: TACROLIMUS
     Dosage: DOSAGE WAS UNCERTAIN.
     Route: 065
  2. BASILIXIMAB [Concomitant]
     Active Substance: BASILIXIMAB
     Dosage: DOSAGE WAS UNCERTAIN.
     Route: 065
  3. RITUXIMAB. [Concomitant]
     Active Substance: RITUXIMAB
     Dosage: DOSAGE WAS  UNCERTAIN.
     Route: 065
  4. CELLCEPT [Suspect]
     Active Substance: MYCOPHENOLATE MOFETIL\MYCOPHENOLATE MOFETIL HYDROCHLORIDE
     Indication: PROPHYLAXIS AGAINST TRANSPLANT REJECTION
     Dosage: DOSAGE WAS UNCERTAIN.
     Route: 048
  5. BORTEZOMIB [Concomitant]
     Active Substance: BORTEZOMIB
     Dosage: DOSAGE WAS UNCERTAIN.
     Route: 065

REACTIONS (2)
  - Anuria [Unknown]
  - Renal tubular necrosis [Unknown]
